FAERS Safety Report 4581425-0 (Version None)
Quarter: 2005Q1

REPORT INFORMATION
  Report Type: 
  Country: None (occurrence: None)
  Receive Date: 20050214
  Receipt Date: 20041021
  Transmission Date: 20050727
  Serious: No
  Sender: FDA-Public Use
  Company Number: US-GLAXOSMITHKLINE-A0530789A

PATIENT
  Age: 26 Year
  Sex: Female

DRUGS (2)
  1. LAMICTAL [Suspect]
     Indication: PARTIAL SEIZURES
     Dosage: 100MG TWICE PER DAY
     Route: 048
     Dates: start: 20040901, end: 20041020
  2. NO CONCURRENT MEDICATION [Concomitant]

REACTIONS (4)
  - LYMPHADENOPATHY [None]
  - NAUSEA [None]
  - URTICARIA [None]
  - VOMITING [None]
